FAERS Safety Report 12573209 (Version 1)
Quarter: 2016Q3

REPORT INFORMATION
  Report Type: Spontaneous
  Country: US (occurrence: US)
  Receive Date: 20160720
  Receipt Date: 20160720
  Transmission Date: 20161109
  Serious: No
  Sender: FDA-Public Use
  Company Number: US-TEVA-595238USA

PATIENT
  Age: 68 Year
  Sex: Female
  Weight: 61.29 kg

DRUGS (1)
  1. TRIAMCINOLONE [Suspect]
     Active Substance: TRIAMCINOLONE
     Route: 065

REACTIONS (3)
  - Oral discomfort [Unknown]
  - Oral discomfort [Not Recovered/Not Resolved]
  - Paraesthesia oral [Unknown]
